FAERS Safety Report 12234061 (Version 1)
Quarter: 2016Q2

REPORT INFORMATION
  Report Type: Spontaneous
  Country: US (occurrence: US)
  Receive Date: 20160404
  Receipt Date: 20160404
  Transmission Date: 20160815
  Serious: No
  Sender: FDA-Public Use
  Company Number: US-VIIV HEALTHCARE LIMITED-US2016042532

PATIENT
  Age: 38 Year
  Sex: Male

DRUGS (1)
  1. TRIUMEQ [Suspect]
     Active Substance: ABACAVIR SULFATE\DOLUTEGRAVIR SODIUM\LAMIVUDINE
     Indication: HIV INFECTION
     Dosage: UNK UNK, QD
     Route: 048
     Dates: start: 20160325

REACTIONS (6)
  - Rash [Not Recovered/Not Resolved]
  - Abdominal distension [Not Recovered/Not Resolved]
  - Secretion discharge [Unknown]
  - Vomiting [Recovered/Resolved]
  - Nausea [Recovered/Resolved]
  - Arthropod bite [Not Recovered/Not Resolved]

NARRATIVE: CASE EVENT DATE: 20160326
